FAERS Safety Report 23132406 (Version 2)
Quarter: 2023Q4

REPORT INFORMATION
  Report Type: Report from Study
  Country: GB (occurrence: GB)
  Receive Date: 20231101
  Receipt Date: 20231117
  Transmission Date: 20240110
  Serious: Yes (Hospitalization)
  Sender: FDA-Public Use
  Company Number: GB-ABBVIE-5415413

PATIENT
  Age: 6 Year
  Sex: Male
  Weight: 20 kg

DRUGS (20)
  1. VENETOCLAX [Suspect]
     Active Substance: VENETOCLAX
     Indication: Neuroblastoma
     Dosage: DRUG NOT ADMINISTERED
     Route: 050
  2. METHADONE [Concomitant]
     Active Substance: METHADONE HYDROCHLORIDE
     Indication: Product used for unknown indication
     Dates: start: 20230619
  3. LEVOTHYROXINE [Concomitant]
     Active Substance: LEVOTHYROXINE
     Indication: Product used for unknown indication
     Dates: start: 20230406
  4. PREGABALIN [Concomitant]
     Active Substance: PREGABALIN
     Indication: Product used for unknown indication
  5. ZINC SULFATE [Concomitant]
     Active Substance: ZINC SULFATE
     Indication: Product used for unknown indication
  6. CHOLECALCIFEROL [Concomitant]
     Active Substance: CHOLECALCIFEROL
     Indication: Product used for unknown indication
     Dosage: DOSAGE: 30000 UNITS
     Dates: start: 20220929
  7. OXYCODONE [Concomitant]
     Active Substance: OXYCODONE
     Indication: Product used for unknown indication
     Dosage: 3 IN 1 AS REQUIRED
     Dates: start: 20211001
  8. CYCLIZINE [Concomitant]
     Active Substance: CYCLIZINE
     Indication: Nausea
     Dosage: 3 IN 1 AS REQUIRED
     Dates: start: 20230829
  9. ONDANSETRON [Concomitant]
     Active Substance: ONDANSETRON
     Indication: Nausea
     Dosage: 3 IN 1 AS REQUIRED
     Dates: start: 20230829
  10. LEVOMEPROMAZINE [Concomitant]
     Active Substance: LEVOMEPROMAZINE
     Indication: Nausea
     Dosage: 2 IN 1 AS REQUIRED
     Dates: start: 20230901
  11. LOPERAMIDE [Concomitant]
     Active Substance: LOPERAMIDE
     Indication: Product used for unknown indication
     Dates: start: 20230829
  12. CHLORPHENIRAMINE MALEATE [Concomitant]
     Active Substance: CHLORPHENIRAMINE MALEATE
     Indication: Product used for unknown indication
     Dates: start: 20220308
  13. FLUCONAZONE [Concomitant]
     Indication: Product used for unknown indication
     Dates: start: 20230905
  14. CIPROFLOXACIN [Concomitant]
     Active Substance: CIPROFLOXACIN
     Indication: Product used for unknown indication
     Dates: start: 20230905
  15. PENTAMIDINE [Concomitant]
     Active Substance: PENTAMIDINE
     Indication: Product used for unknown indication
     Dates: start: 20230905
  16. IDASANUTLIN [Suspect]
     Active Substance: IDASANUTLIN
     Indication: Neuroblastoma
     Dosage: ON 02 SEP 2023, THE PATIENT HAD THE MOST RECENT DOSE PRIOR TO THE EVENT
     Route: 048
     Dates: start: 20230829
  17. IDASANUTLIN [Suspect]
     Active Substance: IDASANUTLIN
     Indication: Neuroblastoma
     Route: 048
  18. IDASANUTLIN [Suspect]
     Active Substance: IDASANUTLIN
     Indication: Neuroblastoma
     Route: 048
  19. TOPOTECAN HYDROCHLORIDE [Suspect]
     Active Substance: TOPOTECAN HYDROCHLORIDE
     Indication: Neuroblastoma
     Dosage: MOST RECENT DOSE PRIOR TO THE EVENT WAS ON 02 SEP 2023
     Route: 042
     Dates: start: 20230829
  20. CYCLOPHOSPHAMIDE [Suspect]
     Active Substance: CYCLOPHOSPHAMIDE
     Indication: Neuroblastoma
     Dosage: DAILY FOR 5 DAYS. ON 02 SEP 2023, HE HAD MOST RECENT DOSE PRIOR TO THE EVENT
     Route: 042
     Dates: start: 20230829

REACTIONS (2)
  - Febrile neutropenia [Recovered/Resolved]
  - Neutropenia [Not Recovered/Not Resolved]

NARRATIVE: CASE EVENT DATE: 20230905
